FAERS Safety Report 5265956-6 (Version None)
Quarter: 2007Q1

REPORT INFORMATION
  Report Type: 
  Country: None (occurrence: None)
  Receive Date: 20070313
  Receipt Date: 20070313
  Transmission Date: 20070707
  Serious: No
  Sender: FDA-Public Use
  Company Number: None

PATIENT

DRUGS (1)
  1. NORTRIPTYLINE HCL [Suspect]

REACTIONS (8)
  - BACK PAIN [None]
  - CONVULSION [None]
  - DIZZINESS [None]
  - FALL [None]
  - FLASHBACK [None]
  - IMPRISONMENT [None]
  - NECK PAIN [None]
  - VISION BLURRED [None]
